FAERS Safety Report 5477776-8 (Version None)
Quarter: 2007Q4

REPORT INFORMATION
  Report Type: 
  Country: None (occurrence: None)
  Receive Date: 20071002
  Receipt Date: 20071002
  Transmission Date: 20080405
  Serious: Yes (Hospitalization)
  Sender: FDA-Public Use
  Company Number: None

PATIENT
  Sex: Female
  Weight: 53.4 kg

DRUGS (1)
  1. METHOTREXATE [Suspect]
     Indication: T-CELL LYMPHOMA
     Dosage: 6840 MG IV DRIP
     Route: 041
     Dates: start: 20070601, end: 20070724

REACTIONS (2)
  - INTERSTITIAL LUNG DISEASE [None]
  - PLEURAL EFFUSION [None]
